FAERS Safety Report 6480349-1 (Version None)
Quarter: 2009Q4

REPORT INFORMATION
  Report Type: 
  Country: None (occurrence: None)
  Receive Date: 20091202
  Receipt Date: 20091119
  Transmission Date: 20100525
  Serious: Yes (Hospitalization)
  Sender: FDA-Public Use
  Company Number: 233414J09USA

PATIENT
  Sex: Female
  Weight: 73 kg

DRUGS (7)
  1. REBIF [Suspect]
     Indication: MULTIPLE SCLEROSIS
     Dosage: 44 MCG, 3 IN 1 WEEKS, SUBCUTANEOUS
     Route: 058
     Dates: start: 20060101, end: 20090601
  2. BACLOFEN [Concomitant]
  3. KLONOPIN [Concomitant]
  4. VENLAFAXINE HCL [Concomitant]
  5. KEPPRA [Concomitant]
  6. IMITREX [Concomitant]
  7. XANAX [Concomitant]

REACTIONS (3)
  - ENDOMETRIOSIS [None]
  - OVARIAN CYST [None]
  - UTERINE LEIOMYOMA [None]
